FAERS Safety Report 8453984-9 (Version None)
Quarter: 2012Q2

REPORT INFORMATION
  Report Type: 
  Country: None (occurrence: None)
  Receive Date: 20120323
  Receipt Date: 20111117
  Transmission Date: 20120825
  Serious: Yes (Hospitalization)
  Sender: FDA-Public Use
  Company Number: 163-21880-11091877

PATIENT
  Age: 70 Year
  Sex: Male

DRUGS (12)
  1. AMLODIPINE [Concomitant]
  2. POTASSIUM CHLORIDE [Concomitant]
  3. DECADRON [Concomitant]
  4. REVLIMID [Suspect]
     Indication: PRODUCT USED FOR UNKNOWN INDICATION
     Dosage: 25 MG, 1 IN 1 D, PO
     Route: 048
     Dates: start: 20110711, end: 20110909
  5. SIMVASTATIN [Concomitant]
  6. METFFORMIN HYDROCHLORIDE [Concomitant]
  7. BACTRIM [Concomitant]
  8. ENALAPRIL MALEATE [Concomitant]
  9. FLUTICASONE PROPIONATE [Concomitant]
  10. PSYLLIUM (PSYLLIUM) [Concomitant]
  11. ATENOLOL [Concomitant]
  12. KLOR-CON [Concomitant]

REACTIONS (2)
  - PNEUMONIA STREPTOCOCCAL [None]
  - INTERSTITIAL LUNG DISEASE [None]
